FAERS Safety Report 9826727 (Version 1)
Quarter: 2014Q1

REPORT INFORMATION
  Report Type: Spontaneous
  Country: US (occurrence: US)
  Receive Date: 20140117
  Receipt Date: 20140117
  Transmission Date: 20141002
  Serious: No
  Sender: FDA-Public Use
  Company Number: US-BIOGENIDEC-2014BI001638

PATIENT
  Age: 50 Year
  Sex: Male

DRUGS (6)
  1. TECFIDERA [Suspect]
     Indication: MULTIPLE SCLEROSIS
     Route: 048
     Dates: start: 20131223
  2. TECFIDERA [Suspect]
     Indication: MULTIPLE SCLEROSIS
     Route: 048
  3. IMODIUM [Concomitant]
  4. SIMVASTATIN [Concomitant]
  5. VITAMIN B COMPLEX [Concomitant]
  6. VITAMIN D [Concomitant]

REACTIONS (2)
  - Prescribed underdose [Unknown]
  - Diarrhoea [Unknown]
